FAERS Safety Report 5887343-X (Version None)
Quarter: 2008Q3

REPORT INFORMATION
  Report Type: 
  Country: None (occurrence: None)
  Receive Date: 20080918
  Receipt Date: 20080820
  Transmission Date: 20090109
  Serious: No
  Sender: FDA-Public Use
  Company Number: US-JNJFOC-20080804981

PATIENT
  Age: 19 Year
  Sex: Female

DRUGS (2)
  1. INVEGA [Suspect]
     Indication: PSYCHOTIC DISORDER
     Route: 048
  2. COGENTIN [Concomitant]
     Indication: MUSCULOSKELETAL STIFFNESS
     Route: 048

REACTIONS (2)
  - BLOOD PROLACTIN INCREASED [None]
  - MUSCULOSKELETAL STIFFNESS [None]
